FAERS Safety Report 8268138-9 (Version None)
Quarter: 2012Q2

REPORT INFORMATION
  Report Type: 
  Country: None (occurrence: None)
  Receive Date: 20120409
  Receipt Date: 20120328
  Transmission Date: 20120825
  Serious: Yes (Other)
  Sender: FDA-Public Use
  Company Number: GB-ROCHE-1043834

PATIENT
  Sex: Male

DRUGS (3)
  1. HYDROXYCHLOROQUINE SULFATE [Concomitant]
  2. METHOTREXATE [Concomitant]
  3. MABTHERA [Suspect]
     Indication: RHEUMATOID ARTHRITIS
     Dosage: LAST DOSE PRIOR TO SAE: 04 AUG 2011
     Dates: start: 20110721

REACTIONS (1)
  - SQUAMOUS CELL CARCINOMA [None]
